FAERS Safety Report 9257257 (Version 1)
Quarter: 2013Q2

REPORT INFORMATION
  Report Type: Spontaneous
  Country: SE (occurrence: SE)
  Receive Date: 20130426
  Receipt Date: 20130426
  Transmission Date: 20140414
  Serious: Yes (Other)
  Sender: FDA-Public Use
  Company Number: PHHY2013SE041202

PATIENT
  Sex: Male

DRUGS (1)
  1. SANDIMMUN NEORAL / OL [Suspect]
     Indication: MYASTHENIA GRAVIS
     Dosage: 2 DF, DAILY
     Route: 048

REACTIONS (1)
  - Renal disorder [Unknown]
